FAERS Safety Report 5876310-8 (Version None)
Quarter: 2008Q3

REPORT INFORMATION
  Report Type: 
  Country: None (occurrence: None)
  Receive Date: 20080910
  Receipt Date: 20080904
  Transmission Date: 20090109
  Serious: Yes (Hospitalization)
  Sender: FDA-Public Use
  Company Number: BR-ABBOTT-08P-020-0474702-00

PATIENT
  Sex: Female
  Weight: 74 kg

DRUGS (6)
  1. HUMIRA [Suspect]
     Indication: RHEUMATOID ARTHRITIS
     Route: 058
     Dates: start: 20080611, end: 20080630
  2. HUMIRA [Suspect]
  3. LEFLUNOMIDE [Concomitant]
     Indication: RHEUMATOID ARTHRITIS
  4. FORASEQ [Concomitant]
     Indication: ASTHMA
     Dosage: ALWAYS IN MORNING AND SOMETIMES AT NIGHT
  5. ENGOV [Concomitant]
     Indication: ABDOMINAL PAIN UPPER
  6. UNKNOWN [Concomitant]
     Indication: ABDOMINAL PAIN UPPER
     Dates: start: 20080630

REACTIONS (4)
  - ABDOMINAL PAIN UPPER [None]
  - CHOLECYSTITIS [None]
  - CHOLELITHIASIS [None]
  - VOMITING [None]
